FAERS Safety Report 17643691 (Version 1)
Quarter: 2020Q2

REPORT INFORMATION
  Report Type: Spontaneous
  Country: US (occurrence: US)
  Receive Date: 20200408
  Receipt Date: 20200408
  Transmission Date: 20200713
  Serious: No
  Sender: FDA-Public Use
  Company Number: US-ALLERGAN-1948846US

PATIENT
  Age: 29 Year
  Sex: Female

DRUGS (1)
  1. LILETTA [Suspect]
     Active Substance: LEVONORGESTREL
     Indication: CONTRACEPTION
     Dosage: 52 MG, SINGLE
     Route: 015
     Dates: start: 20190918

REACTIONS (9)
  - Premenstrual syndrome [Unknown]
  - Anxiety [Unknown]
  - Oligomenorrhoea [Unknown]
  - Pelvic pain [Unknown]
  - Ovarian cyst ruptured [Unknown]
  - Metrorrhagia [Unknown]
  - Mood altered [Unknown]
  - Breast tenderness [Unknown]
  - Libido decreased [Unknown]

NARRATIVE: CASE EVENT DATE: 20191124
